FAERS Safety Report 8303636-0 (Version None)
Quarter: 2012Q2

REPORT INFORMATION
  Report Type: 
  Country: None (occurrence: None)
  Receive Date: 20120418
  Receipt Date: 20120410
  Transmission Date: 20120825
  Serious: No
  Sender: FDA-Public Use
  Company Number: 2012SP019844

PATIENT
  Sex: Female

DRUGS (5)
  1. SYCREST (ASENAPINE /05706901/) [Suspect]
     Indication: PRODUCT USED FOR UNKNOWN INDICATION
  2. LAMOTRIGINE [Concomitant]
  3. SERTRALINE HYDROCHLORIDE [Concomitant]
  4. SEROQUEL [Concomitant]
  5. ORFIRIL /00228501/ [Concomitant]

REACTIONS (4)
  - RESTLESSNESS [None]
  - PSYCHOMOTOR HYPERACTIVITY [None]
  - PRURITUS [None]
  - DIZZINESS [None]
